FAERS Safety Report 5215435-7 (Version None)
Quarter: 2007Q1

REPORT INFORMATION
  Report Type: 
  Country: None (occurrence: None)
  Receive Date: 20070123
  Receipt Date: 20070112
  Transmission Date: 20070707
  Serious: Yes (Hospitalization)
  Sender: FDA-Public Use
  Company Number: CL-ABBOTT-06P-034-0351456-00

PATIENT
  Sex: Male
  Weight: 19 kg

DRUGS (1)
  1. SEVORANE LIQUID FOR INHALATION [Suspect]
     Indication: INDUCTION OF ANAESTHESIA
     Route: 055
     Dates: start: 20061114, end: 20061114

REACTIONS (2)
  - HYPERTHERMIA [None]
  - MUSCLE RIGIDITY [None]
